FAERS Safety Report 13326793 (Version 2)
Quarter: 2017Q2

REPORT INFORMATION
  Report Type: Report from Study
  Country: None (occurrence: BE)
  Receive Date: 20170312
  Receipt Date: 20170427
  Transmission Date: 20170830
  Serious: Yes (Other)
  Sender: FDA-Public Use
  Company Number: BE-ABBVIE-17K-013-1901444-00

PATIENT
  Sex: Female

DRUGS (1)
  1. HUMIRA [Suspect]
     Active Substance: ADALIMUMAB
     Indication: PRODUCT USED FOR UNKNOWN INDICATION
     Route: 058
     Dates: end: 201703

REACTIONS (3)
  - Uterine haemorrhage [Recovered/Resolved]
  - Infection [Unknown]
  - Menopausal symptoms [Unknown]

NARRATIVE: CASE EVENT DATE: 201703
